FAERS Safety Report 11211470 (Version 3)
Quarter: 2015Q3

REPORT INFORMATION
  Report Type: Spontaneous
  Country: JP (occurrence: JP)
  Receive Date: 20150623
  Receipt Date: 20150924
  Transmission Date: 20151125
  Serious: Yes (Other)
  Sender: FDA-Public Use
  Company Number: PHHY2015JP072908

PATIENT
  Age: 69 Year
  Sex: Female
  Weight: 44 kg

DRUGS (7)
  1. FENTANYL. [Concomitant]
     Active Substance: FENTANYL
     Indication: PAIN
     Route: 062
  2. EPIRUBICIN [Suspect]
     Active Substance: EPIRUBICIN
     Indication: BREAST CANCER FEMALE
     Dosage: 60 MG/M2
     Route: 065
  3. PACLITAXEL. [Concomitant]
     Active Substance: PACLITAXEL
     Indication: BREAST CANCER FEMALE
     Dosage: 80 MG/M2
     Route: 065
  4. PIRARUBICIN HCL [Suspect]
     Active Substance: PIRARUBICIN
     Indication: PLEURAL EFFUSION
     Dosage: 40 MG
     Route: 034
  5. FEMARA [Suspect]
     Active Substance: LETROZOLE
     Indication: BREAST CANCER FEMALE
     Dosage: UNK
     Route: 048
  6. CYCLOPHOSPHAMIDE. [Suspect]
     Active Substance: CYCLOPHOSPHAMIDE
     Indication: BREAST CANCER FEMALE
     Dosage: 600 MG/M2
     Route: 065
  7. FULVESTRANT [Concomitant]
     Active Substance: FULVESTRANT
     Indication: BREAST CANCER RECURRENT
     Route: 065

REACTIONS (5)
  - Pericardial effusion [Recovered/Resolved]
  - Breast cancer recurrent [Recovered/Resolved]
  - Drug resistance [Unknown]
  - Cardiac tamponade [Recovered/Resolved]
  - Febrile neutropenia [Unknown]

NARRATIVE: CASE EVENT DATE: 201201
